FAERS Safety Report 10010513 (Version 1)
Quarter: 2014Q1

REPORT INFORMATION
  Report Type: Report from Study
  Country: FR (occurrence: FR)
  Receive Date: 20140314
  Receipt Date: 20140314
  Transmission Date: 20141002
  Serious: Yes (Hospitalization, Other)
  Sender: FDA-Public Use
  Company Number: FR-ROCHE-1361813

PATIENT
  Sex: Male

DRUGS (22)
  1. RITUXIMAB [Suspect]
     Indication: RHEUMATOID ARTHRITIS
     Dosage: DAY 1
     Route: 042
     Dates: start: 20081217
  2. RITUXIMAB [Suspect]
     Dosage: DAY 15
     Route: 042
     Dates: start: 20090122
  3. RITUXIMAB [Suspect]
     Dosage: DAY 1
     Route: 042
     Dates: start: 20090817
  4. RITUXIMAB [Suspect]
     Dosage: DAY 15
     Route: 042
     Dates: start: 20090831
  5. RITUXIMAB [Suspect]
     Dosage: DAY 1
     Route: 042
     Dates: start: 20100318
  6. RITUXIMAB [Suspect]
     Dosage: DAY 15
     Route: 042
     Dates: start: 20100421
  7. RITUXIMAB [Suspect]
     Dosage: DAY 1
     Route: 042
     Dates: start: 20101209
  8. RITUXIMAB [Suspect]
     Dosage: DAY 15
     Route: 042
     Dates: start: 20101222
  9. RITUXIMAB [Suspect]
     Route: 042
     Dates: start: 20110607
  10. RITUXIMAB [Suspect]
     Dosage: DAY 1
     Route: 042
     Dates: start: 20120125
  11. RITUXIMAB [Suspect]
     Dosage: DAY 15
     Route: 042
     Dates: start: 20120210
  12. RITUXIMAB [Suspect]
     Dosage: DAY 1
     Route: 042
     Dates: start: 20120813
  13. RITUXIMAB [Suspect]
     Dosage: DAY 15
     Route: 042
     Dates: start: 20120827
  14. CORTANCYL [Concomitant]
     Dosage: 20 MG DAILY
     Route: 065
     Dates: start: 20081217
  15. CORTANCYL [Concomitant]
     Dosage: 5 MG DAILY
     Route: 065
     Dates: start: 20120210
  16. METHOTREXATE [Concomitant]
     Route: 065
     Dates: start: 20081217
  17. METHOTREXATE [Concomitant]
     Route: 065
     Dates: start: 20090817
  18. METHOTREXATE [Concomitant]
     Route: 065
     Dates: start: 20100318
  19. METHOTREXATE [Concomitant]
     Route: 065
     Dates: start: 20101209
  20. METHOTREXATE [Concomitant]
     Route: 065
     Dates: start: 20110607
  21. METHOTREXATE [Concomitant]
     Route: 065
     Dates: start: 20120125
  22. METHOTREXATE [Concomitant]
     Route: 065
     Dates: start: 20120210

REACTIONS (6)
  - Renal colic [Recovered/Resolved]
  - Renal failure acute [Recovered/Resolved]
  - Urinary tract infection [Recovered/Resolved]
  - Bacterial test positive [Recovered/Resolved]
  - Bronchitis [Not Recovered/Not Resolved]
  - Rhinorrhoea [Unknown]
